FAERS Safety Report 25041482 (Version 2)
Quarter: 2025Q1

REPORT INFORMATION
  Report Type: Report from Study
  Country: CA (occurrence: CA)
  Receive Date: 20250305
  Receipt Date: 20250325
  Transmission Date: 20250409
  Serious: Yes (Hospitalization)
  Sender: TAKEDA
  Company Number: CA-TAKEDA-2025TUS022222

PATIENT
  Age: 81 Year
  Sex: Male

DRUGS (11)
  1. GLASSIA [Suspect]
     Active Substance: .ALPHA.1-PROTEINASE INHIBITOR HUMAN
     Indication: Alpha-1 antitrypsin deficiency
     Dosage: 4440 MILLIGRAM, 1/WEEK
     Dates: start: 20250102
  2. GLASSIA [Suspect]
     Active Substance: .ALPHA.1-PROTEINASE INHIBITOR HUMAN
     Dosage: 4440 MILLIGRAM, 1/WEEK
  3. GLASSIA [Suspect]
     Active Substance: .ALPHA.1-PROTEINASE INHIBITOR HUMAN
     Dosage: 4440 MILLIGRAM, 1/WEEK
  4. PROLASTIN [Concomitant]
     Active Substance: .ALPHA.1-PROTEINASE INHIBITOR HUMAN
  5. SYNJARDY [Concomitant]
     Active Substance: EMPAGLIFLOZIN\METFORMIN HYDROCHLORIDE
     Dosage: UNK UNK, QD
  6. ATORVASTATIN [Concomitant]
     Active Substance: ATORVASTATIN
  7. RAMIPRIL [Concomitant]
     Active Substance: RAMIPRIL
  8. ALBUTEROL [Concomitant]
     Active Substance: ALBUTEROL
  9. VITAMIN D [Concomitant]
     Active Substance: VITAMIN D NOS
  10. COENZYME Q10 [Concomitant]
     Active Substance: DIETARY SUPPLEMENT\UBIDECARENONE
  11. CLOBAZAM [Concomitant]
     Active Substance: CLOBAZAM
     Dosage: 5 MILLIGRAM, QD

REACTIONS (5)
  - Respiratory disorder [Unknown]
  - Oxygen saturation decreased [Unknown]
  - Dyspnoea [Recovering/Resolving]
  - Blood pressure increased [Recovering/Resolving]
  - Infusion site extravasation [Recovered/Resolved]

NARRATIVE: CASE EVENT DATE: 20250227
